FAERS Safety Report 17489349 (Version 1)
Quarter: 2020Q1

REPORT INFORMATION
  Report Type: Spontaneous
  Country: FR (occurrence: FR)
  Receive Date: 20200303
  Receipt Date: 20200303
  Transmission Date: 20200409
  Serious: Yes (Other)
  Sender: FDA-Public Use
  Company Number: FR-MYLANLABS-2020M1024189

PATIENT
  Age: 63 Year
  Sex: Female

DRUGS (5)
  1. VALPROIC ACID. [Suspect]
     Active Substance: VALPROIC ACID
     Indication: BIPOLAR DISORDER
     Dosage: 500 MILLIGRAM, BID
     Route: 065
     Dates: start: 2006
  2. AIROMIR                            /00139502/ [Concomitant]
     Active Substance: ALBUTEROL SULFATE
  3. SEEBRI BREEZHALER [Concomitant]
     Active Substance: GLYCOPYRROLATE
  4. GINKGO EXTRACT\HEPTAMINOL\TROXERUTIN [Concomitant]
     Active Substance: GINKGO\HEPTAMINOL\TROXERUTIN
  5. VENTOLINE                          /00139502/ [Concomitant]
     Active Substance: ALBUTEROL SULFATE

REACTIONS (17)
  - Keratitis [Unknown]
  - Enuresis [Unknown]
  - Weight increased [Unknown]
  - Suicidal ideation [Unknown]
  - Coma [Unknown]
  - Somnolence [Unknown]
  - Hypoaesthesia [Unknown]
  - Urinary incontinence [Unknown]
  - Product availability issue [Unknown]
  - Nausea [Unknown]
  - Oedema peripheral [Unknown]
  - Suicide attempt [Unknown]
  - Hypertension [Unknown]
  - Oral herpes [Unknown]
  - Peripheral swelling [Unknown]
  - Pigmentation disorder [Unknown]
  - Lung disorder [Unknown]

NARRATIVE: CASE EVENT DATE: 2016
